FAERS Safety Report 10401979 (Version 6)
Quarter: 2016Q1

REPORT INFORMATION
  Report Type: Report from Study
  Country: US (occurrence: US)
  Receive Date: 20140822
  Receipt Date: 20160308
  Transmission Date: 20160525
  Serious: Yes (Hospitalization, Other)
  Sender: FDA-Public Use
  Company Number: US-ASTELLAS-2014US006209

PATIENT
  Age: 73 Year
  Sex: Male

DRUGS (8)
  1. ADVIL [Concomitant]
     Active Substance: IBUPROFEN
     Indication: PRODUCT USED FOR UNKNOWN INDICATION
     Dosage: UNK UNK, UNKNOWN FREQ.
     Route: 065
  2. ERLOTINIB [Suspect]
     Active Substance: ERLOTINIB
     Indication: HEPATIC CANCER
     Route: 048
     Dates: start: 20111103
  3. FISH OIL [Concomitant]
     Active Substance: FISH OIL
     Indication: PRODUCT USED FOR UNKNOWN INDICATION
     Dosage: UNK UNK, UNKNOWN FREQ.
     Route: 065
  4. ASPIRIN. [Concomitant]
     Active Substance: ASPIRIN
     Indication: PRODUCT USED FOR UNKNOWN INDICATION
     Route: 048
  5. AMLODIPINE BESILATE [Concomitant]
     Active Substance: AMLODIPINE BESYLATE
     Indication: BLOOD PRESSURE MEASUREMENT
     Dosage: UNK UNK, UNKNOWN FREQ.
     Route: 065
  6. SIMVASTATIN. [Concomitant]
     Active Substance: SIMVASTATIN
     Indication: PRODUCT USED FOR UNKNOWN INDICATION
     Dosage: UNK UNK, UNKNOWN FREQ.
     Route: 065
  7. ERLOTINIB [Suspect]
     Active Substance: ERLOTINIB
     Indication: NON-SMALL CELL LUNG CANCER STAGE IV
     Route: 048
     Dates: start: 20100104
  8. ERLOTINIB [Suspect]
     Active Substance: ERLOTINIB
     Route: 048
     Dates: start: 201111

REACTIONS (25)
  - Pulmonary mass [Not Recovered/Not Resolved]
  - Acne [Unknown]
  - Oral infection [Recovered/Resolved]
  - Pneumonia [Recovered/Resolved]
  - Recurrent cancer [Unknown]
  - Weight decreased [Recovering/Resolving]
  - Rash [Recovered/Resolved with Sequelae]
  - Paralysis [Recovered/Resolved]
  - Pulmonary pain [Not Recovered/Not Resolved]
  - Rash [Not Recovered/Not Resolved]
  - Lyme disease [Recovered/Resolved]
  - Blood pressure abnormal [Unknown]
  - Muscle spasms [Unknown]
  - Cough [Unknown]
  - Rash macular [Recovering/Resolving]
  - Tooth infection [Recovered/Resolved]
  - Movement disorder [Unknown]
  - Blister [Unknown]
  - Drug ineffective [Unknown]
  - Metastases to lymph nodes [Unknown]
  - Pyrexia [Recovering/Resolving]
  - Dry eye [Unknown]
  - Dizziness postural [Unknown]
  - Diarrhoea [Unknown]
  - Rash macular [Unknown]

NARRATIVE: CASE EVENT DATE: 20130222
